FAERS Safety Report 10066790 (Version 2)
Quarter: 2014Q2

REPORT INFORMATION
  Report Type: Report from Study
  Country: US (occurrence: US)
  Receive Date: 20140408
  Receipt Date: 20140415
  Transmission Date: 20141212
  Serious: Yes (Other)
  Sender: FDA-Public Use
  Company Number: PHEH2014US006863

PATIENT
  Sex: Female

DRUGS (3)
  1. RECLAST [Suspect]
     Indication: OSTEOPOROSIS
     Dosage: ONCE PER YEAR
     Route: 042
  2. REMERON [Concomitant]
     Dosage: 30 MG, QD
  3. HYDREA [Concomitant]
     Dosage: 500 MG, QOD

REACTIONS (1)
  - Spinal compression fracture [Unknown]
